FAERS Safety Report 17811408 (Version 1)
Quarter: 2020Q2

REPORT INFORMATION
  Report Type: Spontaneous
  Country: US (occurrence: US)
  Receive Date: 20200520
  Receipt Date: 20200520
  Transmission Date: 20200714
  Serious: No
  Sender: FDA-Public Use
  Company Number: None

PATIENT
  Age: 49 Year
  Weight: 95.25 kg

DRUGS (1)
  1. CAPECITABINE. [Suspect]
     Active Substance: CAPECITABINE
     Indication: BREAST CANCER FEMALE
     Dosage: ?          OTHER FREQUENCY:4TBID;?
     Route: 048
     Dates: start: 20200221

REACTIONS (8)
  - Weight increased [None]
  - Constipation [None]
  - Anxiety [None]
  - Fatigue [None]
  - Bone pain [None]
  - Pruritus [None]
  - Amnesia [None]
  - Increased appetite [None]

NARRATIVE: CASE EVENT DATE: 20200224
